FAERS Safety Report 24668976 (Version 1)
Quarter: 2024Q4

REPORT INFORMATION
  Report Type: Spontaneous
  Country: US (occurrence: US)
  Receive Date: 20241127
  Receipt Date: 20241127
  Transmission Date: 20250115
  Serious: Yes (Other)
  Sender: AUROBINDO
  Company Number: US-MLMSERVICE-20241106-PI251542-00082-1

PATIENT
  Age: 2 Month
  Sex: Female

DRUGS (7)
  1. CARBOPLATIN [Suspect]
     Active Substance: CARBOPLATIN
     Indication: Medulloblastoma
     Dosage: UNK UNK, CYCLICAL (TWO CONSOLIDATION CYCLES OF HIGH-DOSE)
     Route: 065
  2. CYCLOPHOSPHAMIDE [Suspect]
     Active Substance: CYCLOPHOSPHAMIDE
     Indication: Medulloblastoma
     Dosage: UNK UNK, CYCLICAL (THREE INDUCTION CYCLES  )
     Route: 065
  3. METHOTREXATE [Suspect]
     Active Substance: METHOTREXATE
     Indication: Medulloblastoma
     Dosage: UNK UNK, CYCLICAL (THREE INDUCTION CYCLES  )
     Route: 065
  4. CISPLATIN [Suspect]
     Active Substance: CISPLATIN
     Indication: Medulloblastoma
     Dosage: UNK UNK, CYCLICAL (THREE INDUCTION CYCLES)
     Route: 065
  5. VINCRISTINE [Suspect]
     Active Substance: VINCRISTINE
     Indication: Medulloblastoma
     Dosage: UNK UNK, CYCLICAL (THREE INDUCTION CYCLES)
     Route: 065
  6. ETOPOSIDE [Suspect]
     Active Substance: ETOPOSIDE
     Indication: Medulloblastoma
     Dosage: UNK UNK, CYCLICAL (THREE INDUCTION CYCLES)
     Route: 065
  7. THIOTEPA [Suspect]
     Active Substance: THIOTEPA
     Indication: Medulloblastoma
     Dosage: UNK UNK, CYCLICAL (TWO CONSOLIDATION CYCLES OF HIGH-DOSE)
     Route: 065

REACTIONS (2)
  - Cytomegalovirus infection [Unknown]
  - Hydrocephalus [Unknown]
